FAERS Safety Report 5405158-3 (Version None)
Quarter: 2007Q3

REPORT INFORMATION
  Report Type: 
  Country: None (occurrence: None)
  Receive Date: 20070803
  Receipt Date: 20070730
  Transmission Date: 20080115
  Serious: Yes (Life-Threatening, Hospitalization, Disabling, Other)
  Sender: FDA-Public Use
  Company Number: GB-ASTRAZENECA-2007GB01561

PATIENT
  Age: 35 Year
  Sex: Male
  Weight: 115 kg

DRUGS (3)
  1. PULMICORT [Suspect]
     Indication: ASTHMA
     Route: 055
     Dates: start: 20070605, end: 20070706
  2. BECODISKS [Concomitant]
     Indication: ASTHMA
     Route: 055
  3. SALBUTAMOL [Concomitant]
     Indication: ASTHMA
     Route: 055

REACTIONS (6)
  - ASTHMA [None]
  - HYPERSENSITIVITY [None]
  - OEDEMA MOUTH [None]
  - PARAESTHESIA [None]
  - PHARYNGEAL OEDEMA [None]
  - TONGUE OEDEMA [None]
